FAERS Safety Report 11578063 (Version 1)
Quarter: 2015Q3

REPORT INFORMATION
  Report Type: Spontaneous
  Country: IN (occurrence: IN)
  Receive Date: 20150930
  Receipt Date: 20150930
  Transmission Date: 20151125
  Serious: Yes (Other)
  Sender: FDA-Public Use
  Company Number: IN-BRISTOL-MYERS SQUIBB COMPANY-16791568

PATIENT
  Sex: Female

DRUGS (1)
  1. WARFARIN SODIUM. [Suspect]
     Active Substance: WARFARIN SODIUM
     Indication: MITRAL VALVE REPLACEMENT
     Dosage: UNK
     Route: 048
     Dates: start: 2002

REACTIONS (3)
  - Premature delivery [Unknown]
  - Maternal exposure during pregnancy [Recovered/Resolved]
  - Live birth [Unknown]

NARRATIVE: CASE EVENT DATE: 201005
